FAERS Safety Report 5729840-3 (Version None)
Quarter: 2008Q2

REPORT INFORMATION
  Report Type: 
  Country: None (occurrence: None)
  Receive Date: 20080501
  Receipt Date: 20080416
  Transmission Date: 20081010
  Serious: Yes (Other)
  Sender: FDA-Public Use
  Company Number: DSA_31711_2008

PATIENT
  Sex: Male
  Weight: 70.7611 kg

DRUGS (6)
  1. ENALAPRIL MALEATE OR PLACEBO (BLINDED) [Suspect]
     Indication: HYPERTENSION
     Dosage: ORAL
     Route: 048
     Dates: start: 20080228, end: 20080330
  2. MK-8141 STUDY DRUG OR PLACEBO (BLINDED) [Suspect]
     Indication: HYPERTENSION
     Dosage: (ORAL), (50 MG ORAL)
     Route: 048
     Dates: start: 20080128, end: 20080330
  3. MK-8141 STUDY DRUG OR PLACEBO (BLINDED) [Suspect]
     Indication: HYPERTENSION
     Dosage: (ORAL), (50 MG ORAL)
     Route: 048
     Dates: start: 20080228, end: 20080330
  4. PLACEBO (BLINDED) [Suspect]
     Indication: DRUG USE FOR UNKNOWN INDICATION
     Dosage: ORAL
     Route: 048
     Dates: start: 20080208, end: 20080227
  5. ROSUVASTATIN CALCIUM [Concomitant]
  6. ACETAMINOPHEN [Concomitant]

REACTIONS (8)
  - ACCIDENTAL OVERDOSE [None]
  - DIARRHOEA [None]
  - DYSPEPSIA [None]
  - FLANK PAIN [None]
  - HEADACHE [None]
  - NAUSEA [None]
  - PARAESTHESIA [None]
  - VISION BLURRED [None]
